FAERS Safety Report 8153218-9 (Version None)
Quarter: 2012Q1

REPORT INFORMATION
  Report Type: 
  Country: None (occurrence: None)
  Receive Date: 20120221
  Receipt Date: 20120210
  Transmission Date: 20120608
  Serious: No
  Sender: FDA-Public Use
  Company Number: US-JNJFOC-20120207244

PATIENT
  Sex: Male

DRUGS (4)
  1. UNKNOWN MEDICATION [Concomitant]
     Route: 065
  2. INVEGA SUSTENNA [Suspect]
     Indication: PRODUCT USED FOR UNKNOWN INDICATION
     Route: 030
     Dates: end: 20120101
  3. HYDROCODONE BITARTRATE [Concomitant]
     Indication: PAIN
     Route: 048
  4. INVEGA SUSTENNA [Suspect]
     Route: 030
     Dates: start: 20120207

REACTIONS (1)
  - INJECTION SITE PAIN [None]
